FAERS Safety Report 13966039 (Version 1)
Quarter: 2017Q3

REPORT INFORMATION
  Report Type: Spontaneous
  Country: US (occurrence: US)
  Receive Date: 20170913
  Receipt Date: 20170913
  Transmission Date: 20171128
  Serious: Yes (Other)
  Sender: FDA-Public Use
  Company Number: US-PFIZER INC-2017339030

PATIENT
  Age: 62 Year
  Sex: Female
  Weight: 71 kg

DRUGS (16)
  1. METHOTREXATE SODIUM. [Suspect]
     Active Substance: METHOTREXATE SODIUM
     Indication: RHEUMATOID ARTHRITIS
     Dosage: UNK
     Route: 065
  2. SEPTRA [Suspect]
     Active Substance: SULFAMETHOXAZOLE\TRIMETHOPRIM
     Dosage: UNK
     Route: 065
  3. EFFEXOR [Concomitant]
     Active Substance: VENLAFAXINE HYDROCHLORIDE
     Dosage: 75 MG, UNK
     Route: 048
     Dates: start: 20170630
  4. ENBREL [Suspect]
     Active Substance: ETANERCEPT
     Indication: RHEUMATOID ARTHRITIS
     Dosage: UNK
     Route: 065
  5. VITAMIN D [Concomitant]
     Active Substance: CHOLECALCIFEROL
     Dosage: 4000 IU, QD
  6. CYCLOBENZAPRINE HCL [Concomitant]
     Active Substance: CYCLOBENZAPRINE HYDROCHLORIDE
     Dosage: 10 MG, QD
     Route: 048
     Dates: start: 20170630
  7. PEPCID [Suspect]
     Active Substance: FAMOTIDINE
     Dosage: 20 MG, QD
     Route: 048
     Dates: start: 20170731
  8. CALCITONIN [Concomitant]
     Active Substance: CALCITONIN
     Dosage: 200 UNIT/ ACT ONE PUFF IN ONE NOSTRIL DAILY, ALTERNATING SIDES
     Route: 045
     Dates: start: 20170731
  9. CHELATED CALCIUM MAGNESIUM /06790001/ [Concomitant]
     Indication: MUSCLE SPASMS
     Dosage: 2 TABS, BID
  10. PLAQUENIL [Concomitant]
     Active Substance: HYDROXYCHLOROQUINE SULFATE
     Dosage: 200 MG, BID
     Route: 048
     Dates: start: 20170630
  11. HYDROCODONE [Concomitant]
     Active Substance: HYDROCODONE
     Dosage: 10/325
  12. CALCIUM [Concomitant]
     Active Substance: CALCIUM
     Dosage: 600 MG, BID
  13. HUMIRA [Suspect]
     Active Substance: ADALIMUMAB
  14. LORTAB [Concomitant]
     Active Substance: ACETAMINOPHEN\HYDROCODONE BITARTRATE
     Indication: ARTHRALGIA
     Dosage: 10-325 MG, Q8H
     Route: 048
     Dates: start: 20170630
  15. CLONAZEPAM. [Concomitant]
     Active Substance: CLONAZEPAM
     Dosage: 1 MG, HS
     Route: 048
     Dates: start: 20170630
  16. TYLENOL EXTRA STRENGTH [Concomitant]
     Active Substance: ACETAMINOPHEN
     Dosage: 500 MG, QD
     Route: 048
     Dates: start: 20170731

REACTIONS (7)
  - Sinusitis [Unknown]
  - Treatment failure [Unknown]
  - Weight increased [Unknown]
  - Insomnia [Unknown]
  - Dyspepsia [Unknown]
  - Rheumatoid arthritis [Unknown]
  - Urinary tract infection [Unknown]

NARRATIVE: CASE EVENT DATE: 20170731
